FAERS Safety Report 18495076 (Version 1)
Quarter: 2020Q4

REPORT INFORMATION
  Report Type: Spontaneous
  Country: US (occurrence: US)
  Receive Date: 20201111
  Receipt Date: 20201111
  Transmission Date: 20210114
  Serious: Yes (Hospitalization)
  Sender: FDA-Public Use
  Company Number: None

PATIENT
  Age: 71 Year
  Sex: Male
  Weight: 68.04 kg

DRUGS (1)
  1. DEXTROMETHORPHAN (DEXTROMETHORPHAN HBR 5MG/5ML LIQUID) [Suspect]
     Active Substance: DEXTROMETHORPHAN HYDROBROMIDE
     Indication: INSOMNIA
     Dates: start: 20200721, end: 20200726

REACTIONS (2)
  - Myoclonus [None]
  - Drug withdrawal syndrome [None]

NARRATIVE: CASE EVENT DATE: 20200726
